FAERS Safety Report 7125607-2 (Version None)
Quarter: 2010Q4

REPORT INFORMATION
  Report Type: 
  Country: None (occurrence: None)
  Receive Date: 20101129
  Receipt Date: 20101115
  Transmission Date: 20110411
  Serious: Yes (Other)
  Sender: FDA-Public Use
  Company Number: ES-ASTRAZENECA-2010SE54872

PATIENT
  Age: 48 Year
  Sex: Male

DRUGS (6)
  1. MERONEM IV [Suspect]
     Indication: SEPSIS
     Route: 042
     Dates: start: 20100721, end: 20100730
  2. DEPAKENE [Interacting]
     Indication: EPILEPSY
     Route: 065
     Dates: start: 20050101
  3. CLARITHROMYCIN [Concomitant]
     Indication: SEPSIS
     Route: 048
     Dates: start: 20100721, end: 20100730
  4. LINEZOLID [Concomitant]
     Indication: SEPSIS
     Dosage: 1-2 GM/ TWICE DAILY
     Route: 042
     Dates: start: 20100721, end: 20100730
  5. LEVOFLOXACIN [Concomitant]
     Indication: SEPSIS
     Route: 042
     Dates: start: 20100721, end: 20100730
  6. FLUCONAZOLE [Concomitant]
     Indication: SEPSIS
     Route: 042
     Dates: start: 20100718, end: 20100729

REACTIONS (4)
  - ANTICONVULSANT DRUG LEVEL DECREASED [None]
  - CONVULSION [None]
  - DRUG INEFFECTIVE [None]
  - DRUG INTERACTION [None]
